FAERS Safety Report 6835579-3 (Version None)
Quarter: 2010Q3

REPORT INFORMATION
  Report Type: 
  Country: None (occurrence: None)
  Receive Date: 20100713
  Receipt Date: 20100701
  Transmission Date: 20110219
  Serious: Yes (Hospitalization)
  Sender: FDA-Public Use
  Company Number: US-ELI_LILLY_AND_COMPANY-US201007001024

PATIENT
  Sex: Female

DRUGS (4)
  1. FORTEO [Suspect]
     Indication: OSTEOPOROSIS
     Dosage: 20 UG, DAILY (1/D)
     Dates: start: 20100325
  2. IRON [Concomitant]
     Indication: MINERAL SUPPLEMENTATION
  3. POTASSIUM [Concomitant]
     Indication: MINERAL SUPPLEMENTATION
  4. MAGNESIUM [Concomitant]
     Indication: MINERAL SUPPLEMENTATION

REACTIONS (5)
  - BLOOD IRON DECREASED [None]
  - BLOOD MAGNESIUM DECREASED [None]
  - BLOOD POTASSIUM DECREASED [None]
  - DEHYDRATION [None]
  - LOSS OF CONSCIOUSNESS [None]
